FAERS Safety Report 5852016-6 (Version None)
Quarter: 2008Q3

REPORT INFORMATION
  Report Type: 
  Country: None (occurrence: None)
  Receive Date: 20080820
  Receipt Date: 20080811
  Transmission Date: 20090109
  Serious: Yes (Other)
  Sender: FDA-Public Use
  Company Number: US-PFIZER INC-2008066987

PATIENT
  Sex: Female

DRUGS (2)
  1. TIKOSYN [Suspect]
     Indication: ATRIAL FIBRILLATION
  2. DRUG, UNSPECIFIED [Concomitant]

REACTIONS (4)
  - CYSTITIS [None]
  - DRUG DOSE OMISSION [None]
  - HYPERTENSION [None]
  - SURGERY [None]
